FAERS Safety Report 4385822-8 (Version None)
Quarter: 2004Q2

REPORT INFORMATION
  Report Type: 
  Country: None (occurrence: None)
  Receive Date: 20040623
  Receipt Date: 20040607
  Transmission Date: 20050107
  Serious: Yes (Other)
  Sender: FDA-Public Use
  Company Number: 230002M04DEU

PATIENT
  Age: 40 Year
  Sex: Female
  Weight: 53 kg

DRUGS (3)
  1. REBIF [Suspect]
     Indication: MULTIPLE SCLEROSIS
     Dosage: 44 MCG, 3 IN 1 WEEKS, SUBCUTANEOUS
     Route: 058
  2. OXYBUTYNIN [Concomitant]
  3. HEXACHLOROPHENE [Concomitant]

REACTIONS (8)
  - ANGINA PECTORIS [None]
  - DRUG INTERACTION [None]
  - EJECTION FRACTION DECREASED [None]
  - ELECTROCARDIOGRAM T WAVE ABNORMAL [None]
  - INTRACARDIAC THROMBUS [None]
  - MYOCARDIAL ISCHAEMIA [None]
  - SCAR [None]
  - VENTRICULAR HYPOKINESIA [None]
